FAERS Safety Report 10944379 (Version 1)
Quarter: 2015Q1

REPORT INFORMATION
  Report Type: Spontaneous
  Country: US (occurrence: US)
  Receive Date: 20150323
  Receipt Date: 20150323
  Transmission Date: 20150721
  Serious: No
  Sender: FDA-Public Use
  Company Number: US-BIOGENIDEC-2015BI031877

PATIENT
  Age: 21 Year
  Sex: Female

DRUGS (1)
  1. AVONEX [Suspect]
     Active Substance: INTERFERON BETA-1A
     Indication: MULTIPLE SCLEROSIS
     Route: 030
     Dates: start: 20131009

REACTIONS (12)
  - Drug dose omission [Unknown]
  - Scoliosis [Not Recovered/Not Resolved]
  - Pain in extremity [Unknown]
  - Joint injury [Not Recovered/Not Resolved]
  - Influenza like illness [Recovered/Resolved]
  - Alopecia [Not Recovered/Not Resolved]
  - Road traffic accident [Recovered/Resolved]
  - Headache [Unknown]
  - Head injury [Unknown]
  - Migraine [Not Recovered/Not Resolved]
  - Back pain [Not Recovered/Not Resolved]
  - Procedural anxiety [Unknown]

NARRATIVE: CASE EVENT DATE: 20141212
